FAERS Safety Report 6185988-3 (Version None)
Quarter: 2009Q2

REPORT INFORMATION
  Report Type: 
  Country: None (occurrence: None)
  Receive Date: 20090511
  Receipt Date: 20090429
  Transmission Date: 20091009
  Serious: Yes (Other)
  Sender: FDA-Public Use
  Company Number: US-PFIZER INC-2005153836

PATIENT
  Sex: Female

DRUGS (19)
  1. MEDROXYPROGESTERONE AND MEDROXYPROGESTERONE ACETATE [Suspect]
     Indication: HORMONE REPLACEMENT THERAPY
     Dosage: UNK MG, UNK
     Route: 048
     Dates: start: 19990513, end: 20050308
  2. MEDROXYPROGESTERONE ACETATE [Suspect]
     Indication: HORMONE REPLACEMENT THERAPY
     Dosage: 2.5 UNK, UNK
     Dates: start: 19990513, end: 20050308
  3. MEDROXYPROGESTERONE ACETATE [Suspect]
     Indication: MENOPAUSE
  4. PREMPRO [Suspect]
     Indication: HORMONE REPLACEMENT THERAPY
     Dosage: 0.625/2.5MG
     Dates: start: 19981020, end: 19990302
  5. PREMPRO [Suspect]
     Indication: MENOPAUSE
  6. PREMARIN [Suspect]
     Indication: HORMONE REPLACEMENT THERAPY
     Dosage: 1.25 MG, UNK
     Route: 065
     Dates: start: 19990513, end: 20040921
  7. PREMARIN [Suspect]
     Indication: MENOPAUSE
     Dosage: 0.9 MG, UNK
     Dates: start: 20040921, end: 20050221
  8. ESTRATEST [Suspect]
     Indication: HORMONE REPLACEMENT THERAPY
     Dosage: UNK
     Route: 048
     Dates: start: 19981228, end: 19990129
  9. ESTRATEST [Suspect]
     Indication: MENOPAUSE
  10. ORTHO-EST [Suspect]
     Indication: HORMONE REPLACEMENT THERAPY
     Route: 065
     Dates: start: 19990629, end: 19991028
  11. ORTHO-EST [Suspect]
     Indication: MENOPAUSE
  12. FEMHRT [Suspect]
     Indication: HORMONE REPLACEMENT THERAPY
     Dosage: 1.5 TAB
     Route: 048
     Dates: start: 20020516, end: 20020801
  13. MENEST [Suspect]
     Indication: HORMONE REPLACEMENT THERAPY
     Dosage: 1.25 MG, UNK
     Dates: start: 20021202, end: 20030301
  14. MENEST [Suspect]
     Indication: MENOPAUSE
  15. ATIVAN [Concomitant]
     Indication: ANXIETY
     Dosage: UNK
     Dates: start: 19950101
  16. ZOLOFT [Concomitant]
     Indication: DEPRESSION
     Dosage: UNK
     Dates: start: 19950101
  17. SYNTHROID [Concomitant]
     Indication: THYROID DISORDER
     Dosage: UNK
     Dates: start: 19920701
  18. NORVASC [Concomitant]
     Indication: HYPERTENSION
     Dosage: UNK
     Dates: start: 20030324
  19. HYDROCHLOROTHIAZIDE [Concomitant]
     Indication: HYPERTENSION
     Dosage: UNK
     Dates: start: 20030909

REACTIONS (1)
  - BREAST CANCER [None]
